FAERS Safety Report 18850043 (Version 1)
Quarter: 2021Q1

REPORT INFORMATION
  Report Type: Spontaneous
  Country: US (occurrence: US)
  Receive Date: 20210204
  Receipt Date: 20210204
  Transmission Date: 20210420
  Serious: Yes (Other)
  Sender: FDA-Public Use
  Company Number: US-GLAXOSMITHKLINE-US2021GSK029026

PATIENT
  Sex: Female

DRUGS (2)
  1. RANITIDINE. [Suspect]
     Active Substance: RANITIDINE
     Indication: DIVERTICULITIS
     Dosage: 300 MG, QD
     Route: 065
     Dates: start: 199701, end: 200009
  2. RANITIDINE. [Suspect]
     Active Substance: RANITIDINE
     Indication: DIVERTICULITIS
     Dosage: 300 MG, QD
     Route: 065
     Dates: start: 199701, end: 200009

REACTIONS (1)
  - Gastric cancer [Unknown]
